FAERS Safety Report 5582878-1 (Version None)
Quarter: 2008Q1

REPORT INFORMATION
  Report Type: 
  Country: None (occurrence: None)
  Receive Date: 20080107
  Receipt Date: 20080103
  Transmission Date: 20080703
  Serious: Yes (Life-Threatening, Hospitalization)
  Sender: FDA-Public Use
  Company Number: FR-BRISTOL-MYERS SQUIBB COMPANY-13816954

PATIENT
  Age: 81 Year
  Sex: Male

DRUGS (4)
  1. ERBITUX [Suspect]
     Indication: SQUAMOUS CELL CARCINOMA
     Route: 042
     Dates: start: 20070207, end: 20070207
  2. LASILIX [Concomitant]
     Indication: CARDIAC FAILURE
     Route: 048
  3. SOTALOL HCL [Concomitant]
     Indication: HYPERTENSION
  4. TRIATEC [Concomitant]
     Indication: HYPERTENSION
     Route: 048

REACTIONS (3)
  - ANAPHYLACTIC SHOCK [None]
  - CYTOLYTIC HEPATITIS [None]
  - HEPATITIS [None]
